FAERS Safety Report 5603918-7 (Version None)
Quarter: 2008Q1

REPORT INFORMATION
  Report Type: 
  Country: None (occurrence: None)
  Receive Date: 20080123
  Receipt Date: 20080123
  Transmission Date: 20080703
  Serious: Yes (Hospitalization)
  Sender: FDA-Public Use
  Company Number: None

PATIENT
  Sex: Male
  Weight: 9.5 kg

DRUGS (3)
  1. DOXORUBICIN HYDROCHLORIDE [Suspect]
     Dosage: 33 MG
  2. VINCRISTINE SULFATE [Suspect]
     Dosage: .48 MG
  3. CYCLOPHOSPHAMIDE [Suspect]
     Dosage: 528 MG

REACTIONS (19)
  - ABDOMINAL DISTENSION [None]
  - ACUTE PRERENAL FAILURE [None]
  - ASCITES [None]
  - DISCOMFORT [None]
  - HYPERCALCAEMIA [None]
  - JAUNDICE [None]
  - LIVER DISORDER [None]
  - NEUTROPHIL COUNT DECREASED [None]
  - OEDEMA [None]
  - OEDEMA PERIPHERAL [None]
  - ORAL INTAKE REDUCED [None]
  - PERITONEAL EFFUSION [None]
  - PLEURAL EFFUSION [None]
  - RESPIRATORY DISORDER [None]
  - RESPIRATORY DISTRESS [None]
  - SCROTAL OEDEMA [None]
  - THROMBOCYTOPENIA [None]
  - URINE OUTPUT DECREASED [None]
  - VOMITING [None]
